FAERS Safety Report 5771491-9 (Version None)
Quarter: 2008Q2

REPORT INFORMATION
  Report Type: 
  Country: None (occurrence: None)
  Receive Date: 20080612
  Receipt Date: 20080612
  Transmission Date: 20081010
  Serious: Yes (Other)
  Sender: FDA-Public Use
  Company Number: None

PATIENT
  Sex: Female
  Weight: 68.0396 kg

DRUGS (3)
  1. ZYMAR [Suspect]
     Indication: INFECTION PROPHYLAXIS
     Dosage: 1 DROP 4 TIMES PER DAY OPHTHALMIC
     Route: 047
     Dates: start: 20080602, end: 20080609
  2. ACULAR [Concomitant]
  3. PREDNISONE [Concomitant]

REACTIONS (3)
  - ARTHRALGIA [None]
  - PHOTOSENSITIVITY REACTION [None]
  - PRURITUS [None]
